FAERS Safety Report 10524604 (Version 2)
Quarter: 2014Q4

REPORT INFORMATION
  Report Type: Spontaneous
  Country: FR (occurrence: FR)
  Receive Date: 20141017
  Receipt Date: 20141120
  Transmission Date: 20150528
  Serious: No
  Sender: FDA-Public Use
  Company Number: FR-JNJFOC-20141008825

PATIENT
  Age: 87 Year
  Sex: Female

DRUGS (1)
  1. DUROGESIC [Suspect]
     Active Substance: FENTANYL
     Indication: PRODUCT USED FOR UNKNOWN INDICATION
     Dosage: PRESCRIBED ONE AND A HALF PATCHES
     Route: 062

REACTIONS (3)
  - Off label use [Unknown]
  - Drug prescribing error [Unknown]
  - Wrong technique in drug usage process [Unknown]

NARRATIVE: CASE EVENT DATE: 20141008
